FAERS Safety Report 17913079 (Version 1)
Quarter: 2020Q2

REPORT INFORMATION
  Report Type: Spontaneous
  Country: DE (occurrence: DE)
  Receive Date: 20200618
  Receipt Date: 20200618
  Transmission Date: 20200714
  Serious: Yes (Other)
  Sender: FDA-Public Use
  Company Number: DE-MYLANLABS-2020M1056194

PATIENT
  Sex: Female
  Weight: 75.6 kg

DRUGS (13)
  1. VALSARTAN HEXAL [Suspect]
     Active Substance: VALSARTAN
     Dosage: 80 MG, QD (80 MG/ 12.5 MG)
     Route: 065
     Dates: start: 20180705, end: 20180715
  2. MAGNEESIUM [Concomitant]
     Active Substance: MAGNESIUM
     Indication: PRODUCT USED FOR UNKNOWN INDICATION
     Dosage: UNK
     Route: 065
     Dates: start: 1997
  3. VALSARTAN. [Concomitant]
     Active Substance: VALSARTAN
     Indication: PRODUCT USED FOR UNKNOWN INDICATION
     Dosage: 80 MG, HALF A TABLET
     Route: 065
     Dates: start: 20151128
  4. VALSARTAN HEXAL [Suspect]
     Active Substance: VALSARTAN
     Indication: PRODUCT USED FOR UNKNOWN INDICATION
     Dosage: 80 MG (80 MG/ 12.5 MG)
     Route: 065
     Dates: start: 201209
  5. BETAVERT                           /00141803/ [Concomitant]
     Indication: PRODUCT USED FOR UNKNOWN INDICATION
     Dosage: 24 MG
     Route: 065
     Dates: start: 20180119, end: 20180131
  6. VALSACOR COMP [Concomitant]
     Active Substance: HYDROCHLOROTHIAZIDE\VALSARTAN
     Indication: PRODUCT USED FOR UNKNOWN INDICATION
     Dosage: UNK
     Route: 065
     Dates: start: 20151128
  7. VALSARTAN. [Suspect]
     Active Substance: VALSARTAN
     Indication: PRODUCT USED FOR UNKNOWN INDICATION
     Dosage: 80 MG, BID (80 MG/12.5 MG)
     Route: 065
     Dates: start: 20150421
  8. VALSARTAN HEXAL [Suspect]
     Active Substance: VALSARTAN
     Dosage: 80 MG, BID (80 MG/ 12.5 MG)
     Route: 065
     Dates: start: 20140714
  9. VALSARTAN HEXAL [Suspect]
     Active Substance: VALSARTAN
     Dosage: 80 MG, QD (HALF 80 MG)
     Route: 065
     Dates: start: 20180705, end: 20180715
  10. VALSARTAN HEXAL [Suspect]
     Active Substance: VALSARTAN
     Dosage: 80 MG, QD (80 MG/ 12.5 MG)
     Route: 065
     Dates: start: 20140127, end: 20140713
  11. VALSARTAN HEXAL [Suspect]
     Active Substance: VALSARTAN
     Dosage: 80 MG, QD (HALF 80 MG)
     Route: 065
     Dates: start: 20170406, end: 20180704
  12. VALSARTAN. [Suspect]
     Active Substance: VALSARTAN
     Dosage: 80 MG, QD (80MG/12.5 MG)
     Route: 065
     Dates: start: 20150421
  13. VENORUTON INTENS [Concomitant]
     Indication: PRODUCT USED FOR UNKNOWN INDICATION
     Dosage: UNK
     Route: 065
     Dates: start: 1997

REACTIONS (23)
  - Constipation [Unknown]
  - Diverticulum intestinal [Unknown]
  - Bone pain [Unknown]
  - Emotional distress [Unknown]
  - Coronary artery disease [Unknown]
  - Gastrointestinal disorder [Recovered/Resolved]
  - Dizziness [Recovered/Resolved]
  - Irritable bowel syndrome [Unknown]
  - Pain in extremity [Unknown]
  - Colitis [Unknown]
  - Osteoarthritis [Unknown]
  - Headache [Unknown]
  - Arthralgia [Unknown]
  - Tinnitus [Unknown]
  - Granulomatosis with polyangiitis [Unknown]
  - Angina pectoris [Recovered/Resolved]
  - Poor quality sleep [Recovered/Resolved]
  - Stenosis [Unknown]
  - Diverticulitis [Unknown]
  - Loss of consciousness [Unknown]
  - Blood pressure increased [Recovered/Resolved]
  - Abdominal pain lower [Unknown]
  - Anxiety [Recovered/Resolved]

NARRATIVE: CASE EVENT DATE: 2013
